FAERS Safety Report 25478637 (Version 3)
Quarter: 2025Q3

REPORT INFORMATION
  Report Type: Spontaneous
  Country: US (occurrence: US)
  Receive Date: 20250625
  Receipt Date: 20250702
  Transmission Date: 20251020
  Serious: No
  Sender: LUPIN
  Company Number: US-LUPIN PHARMACEUTICALS INC.-2025-05200

PATIENT

DRUGS (1)
  1. JENCYCLA [Suspect]
     Active Substance: NORETHINDRONE
     Indication: Oral contraception
     Route: 065

REACTIONS (3)
  - Heavy menstrual bleeding [Unknown]
  - Product dispensing error [Unknown]
  - Product substitution issue [Unknown]
